FAERS Safety Report 7382880-3 (Version None)
Quarter: 2011Q1

REPORT INFORMATION
  Report Type: 
  Country: None (occurrence: None)
  Receive Date: 20110330
  Receipt Date: 20110310
  Transmission Date: 20110831
  Serious: Yes (Other)
  Sender: FDA-Public Use
  Company Number: US-BAYER-200939344NA

PATIENT
  Sex: Female

DRUGS (16)
  1. DOBUTAMINE [Concomitant]
     Dosage: UNK
     Route: 042
     Dates: start: 20010114
  2. LIPITOR [Concomitant]
     Dosage: 40 MG, QD
     Route: 048
     Dates: start: 20010109
  3. DOPAMINE HCL [Concomitant]
     Dosage: UNK
     Route: 042
     Dates: start: 20010113
  4. RED BLOOD CELLS [Concomitant]
     Dosage: 2 U, UNK
     Dates: start: 20010114
  5. NITROGLYCERIN [Concomitant]
     Dosage: UNK
     Route: 041
     Dates: start: 20010112
  6. TRASYLOL [Suspect]
     Indication: CORONARY ARTERY BYPASS
     Route: 042
     Dates: start: 20010111
  7. RESTORIL [Concomitant]
     Dosage: UNK
     Route: 048
     Dates: start: 20010109
  8. ESMOLOL [Concomitant]
     Dosage: UNK
     Route: 042
     Dates: start: 20110109
  9. RED BLOOD CELLS [Concomitant]
     Dosage: 2 U, UNK
     Dates: start: 20010113
  10. BACTROBAN [Concomitant]
     Indication: STAPHYLOCOCCUS TEST POSITIVE
     Dosage: UNK
     Dates: start: 20010119
  11. METOPROLOL TARTRATE [Concomitant]
     Dosage: UNK
     Route: 048
     Dates: start: 20010109
  12. TRASYLOL [Suspect]
     Indication: AORTIC ANEURYSM REPAIR
  13. OPTIRAY 350 [Concomitant]
     Indication: CATHETERISATION CARDIAC
     Dosage: 100 ML, UNK
     Dates: start: 20010109
  14. SODIUM NITROPRUSSIDE [Concomitant]
     Dosage: UNK
     Route: 042
     Dates: start: 20110109
  15. EPINEPHRINE [Concomitant]
     Dosage: UNK
     Route: 041
     Dates: start: 20010112
  16. CEFAZOLIN [Concomitant]
     Route: 042

REACTIONS (10)
  - FEAR [None]
  - INJURY [None]
  - EMOTIONAL DISTRESS [None]
  - RENAL FAILURE [None]
  - STRESS [None]
  - ANXIETY [None]
  - RENAL INJURY [None]
  - UNEVALUABLE EVENT [None]
  - RENAL IMPAIRMENT [None]
  - PAIN [None]
